FAERS Safety Report 4487738-5 (Version None)
Quarter: 2004Q4

REPORT INFORMATION
  Report Type: 
  Country: None (occurrence: None)
  Receive Date: 20041027
  Receipt Date: 20041027
  Transmission Date: 20050328
  Serious: Yes (Hospitalization)
  Sender: FDA-Public Use
  Company Number: None

PATIENT
  Age: 52 Year
  Sex: Male
  Weight: 56.6996 kg

DRUGS (6)
  1. SPIRONOLACTONE [Suspect]
     Indication: HEPATIC CIRRHOSIS
     Dosage: 25 MG 8 TABS QD
     Dates: start: 20040701
  2. ENALAPRIL [Suspect]
     Indication: HYPERTENSION
     Dosage: 20 MG QD
     Dates: start: 20040601
  3. LACTULUSE [Concomitant]
  4. OMEPRAZOLE [Concomitant]
  5. PROPRANDOL [Concomitant]
  6. FUROSEMIDE [Concomitant]

REACTIONS (4)
  - DIARRHOEA [None]
  - HYPERKALAEMIA [None]
  - NAUSEA [None]
  - RENAL FAILURE ACUTE [None]
